FAERS Safety Report 9320521 (Version 1)
Quarter: 2013Q2

REPORT INFORMATION
  Report Type: Spontaneous
  Country: US (occurrence: US)
  Receive Date: 20130531
  Receipt Date: 20130531
  Transmission Date: 20140414
  Serious: No
  Sender: FDA-Public Use
  Company Number: US-009507513-1305USA013580

PATIENT
  Age: 51 Year
  Sex: Female

DRUGS (6)
  1. MIRALAX [Suspect]
     Indication: CONSTIPATION
     Dosage: UNK, QD
     Route: 048
     Dates: start: 2009
  2. MIRALAX [Suspect]
     Indication: MEDICAL OBSERVATION
     Dosage: UNK, QD
     Route: 048
     Dates: start: 2009
  3. ARIMIDEX [Concomitant]
     Indication: BREAST CANCER
     Dosage: UNK, UNKNOWN
  4. VITAMIN D (UNSPECIFIED) [Concomitant]
     Indication: PRODUCT USED FOR UNKNOWN INDICATION
     Dosage: UNK, UNKNOWN
  5. CALCIUM (UNSPECIFIED) [Concomitant]
     Indication: PRODUCT USED FOR UNKNOWN INDICATION
     Dosage: UNK, UNKNOWN
  6. MAGNESIUM CITRATE [Concomitant]
     Indication: PRODUCT USED FOR UNKNOWN INDICATION
     Dosage: UNK, UNKNOWN

REACTIONS (3)
  - Incorrect drug administration duration [Unknown]
  - Product taste abnormal [Unknown]
  - Product physical issue [Unknown]
